FAERS Safety Report 8037229-X (Version None)
Quarter: 2011Q4

REPORT INFORMATION
  Report Type: 
  Country: None (occurrence: None)
  Receive Date: 20111202
  Receipt Date: 20100329
  Transmission Date: 20120403
  Serious: Yes (Hospitalization)
  Sender: FDA-Public Use
  Company Number: 2009SP040437

PATIENT
  Age: 30 Year
  Sex: Female
  Weight: 92.9874 kg

DRUGS (8)
  1. ZOLOFT [Concomitant]
  2. PREDNISONE [Concomitant]
  3. DARVOCET-N 100 [Concomitant]
  4. NORVASC [Concomitant]
  5. FOLIC ACID [Concomitant]
  6. METHOTREXATE [Concomitant]
  7. NUVARING [Suspect]
     Indication: CONTRACEPTION
     Dosage: ;VAG
     Route: 067
     Dates: start: 20060501, end: 20060821
  8. NORVASC [Concomitant]

REACTIONS (5)
  - VENA CAVA THROMBOSIS [None]
  - PULMONARY EMBOLISM [None]
  - VISUAL IMPAIRMENT [None]
  - PULMONARY INFARCTION [None]
  - MENSTRUAL DISORDER [None]
